FAERS Safety Report 9341280 (Version 9)
Quarter: 2014Q2

REPORT INFORMATION
  Report Type: Report from Study
  Country: FR (occurrence: FR)
  Receive Date: 20130611
  Receipt Date: 20140430
  Transmission Date: 20141212
  Serious: Yes (Death, Hospitalization)
  Sender: FDA-Public Use
  Company Number: FR-ROCHE-1206182

PATIENT
  Age: 72 Year
  Sex: Male
  Weight: 62 kg

DRUGS (20)
  1. RITUXIMAB [Suspect]
     Indication: B-CELL LYMPHOMA
     Route: 042
     Dates: start: 20120418, end: 20120418
  2. RHUPH20/RITUXIMAB [Suspect]
     Indication: B-CELL LYMPHOMA
     Dosage: LAST DOSE PRIOR TO SAE 12/DEC/2012
     Route: 058
     Dates: start: 20120530, end: 20131029
  3. RHUPH20/RITUXIMAB [Suspect]
     Route: 058
     Dates: start: 20120627, end: 20120627
  4. RHUPH20/RITUXIMAB [Suspect]
     Route: 058
     Dates: start: 20120822, end: 20120822
  5. RHUPH20/RITUXIMAB [Suspect]
     Route: 058
     Dates: start: 20121107, end: 20121107
  6. VASTAREL [Concomitant]
     Indication: TINNITUS
     Dosage: PER DAY
     Route: 065
     Dates: start: 1992, end: 20121212
  7. XALACOM [Concomitant]
     Route: 065
     Dates: start: 2007
  8. ORACILLINE [Concomitant]
     Indication: INFECTION PROPHYLAXIS
     Dosage: 1M UI PER DAY
     Route: 065
     Dates: start: 200801
  9. ZELITREX [Concomitant]
     Indication: INFECTION PROPHYLAXIS
     Dosage: PER DAY
     Route: 065
     Dates: start: 20120417, end: 20120822
  10. ZELITREX [Concomitant]
     Dosage: 3000 MG PER DAY
     Route: 065
     Dates: start: 20120822
  11. INEXIUM [Concomitant]
     Route: 065
     Dates: start: 20120417, end: 20121212
  12. PERFALGAN [Concomitant]
     Indication: CHILLS
     Route: 065
     Dates: start: 20120418, end: 20120418
  13. POLARAMINE [Concomitant]
     Indication: CHILLS
     Route: 065
     Dates: start: 20120418, end: 20120418
  14. SOLU-MEDROL [Concomitant]
     Indication: CHILLS
     Route: 065
     Dates: start: 20120418, end: 20120418
  15. ZOPHREN [Concomitant]
     Indication: PROPHYLAXIS OF NAUSEA AND VOMITING
     Route: 065
     Dates: start: 20120531
  16. NEULASTA [Concomitant]
     Indication: PROPHYLAXIS
     Dosage: 6 MG AT EVERY J4
     Route: 065
     Dates: start: 20120602
  17. PRIMPERAN [Concomitant]
     Indication: VOMITING
     Route: 065
     Dates: start: 20120422, end: 20120423
  18. TRIMETHOPRIME [Concomitant]
     Indication: INFECTION PROPHYLAXIS
     Dosage: 640 MG/WEEK
     Route: 065
     Dates: start: 20120417
  19. GRANOCYTE [Concomitant]
     Indication: NEUTROPENIA
     Dosage: 34 M UI
     Route: 065
     Dates: start: 20121107, end: 20121111
  20. SULFAMETHOXAZOLE [Concomitant]
     Indication: INFECTION PROPHYLAXIS
     Dosage: 3200 MG/WEEK
     Route: 065
     Dates: start: 20120417

REACTIONS (1)
  - Rectal cancer [Fatal]
